FAERS Safety Report 7603354-8 (Version None)
Quarter: 2011Q3

REPORT INFORMATION
  Report Type: 
  Country: None (occurrence: None)
  Receive Date: 20110711
  Receipt Date: 20110711
  Transmission Date: 20111222
  Serious: Yes (Other)
  Sender: FDA-Public Use
  Company Number: None

PATIENT
  Sex: Female
  Weight: 32.659 kg

DRUGS (1)
  1. NEURONTIN [Suspect]
     Dosage: 250MG/5ML TID 1 SOLUTION QS

REACTIONS (2)
  - DRUG HYPERSENSITIVITY [None]
  - SWELLING FACE [None]
